FAERS Safety Report 19802694 (Version 1)
Quarter: 2021Q3

REPORT INFORMATION
  Report Type: Spontaneous
  Country: CA (occurrence: CA)
  Receive Date: 20210908
  Receipt Date: 20210908
  Transmission Date: 20211014
  Serious: Yes (Hospitalization, Other)
  Sender: FDA-Public Use
  Company Number: CA-LUPIN PHARMACEUTICALS INC.-2021-16659

PATIENT
  Age: 84 Year
  Sex: Male
  Weight: 83 kg

DRUGS (29)
  1. CEFTOLOZANE;TAZOBACTAM [Suspect]
     Active Substance: CEFTOLOZANE SULFATE\TAZOBACTAM SODIUM
     Indication: PSEUDOMONAS INFECTION
  2. CLOXACILLIN [Suspect]
     Active Substance: CLOXACILLIN
     Indication: DIABETIC FOOT
     Dosage: UNK
     Route: 048
  3. CLOXACILLIN [Suspect]
     Active Substance: CLOXACILLIN
     Indication: STAPHYLOCOCCAL INFECTION
  4. CIPROFLOXACIN. [Suspect]
     Active Substance: CIPROFLOXACIN
     Indication: DIABETIC FOOT
     Dosage: 500 MILLIGRAM, BID
     Route: 048
  5. ERTAPENEM. [Suspect]
     Active Substance: ERTAPENEM SODIUM
     Indication: PSEUDOMONAS INFECTION
  6. CLOXACILLIN [Suspect]
     Active Substance: CLOXACILLIN
     Indication: BETA HAEMOLYTIC STREPTOCOCCAL INFECTION
  7. CLOXACILLIN [Suspect]
     Active Substance: CLOXACILLIN
     Indication: PSEUDOMONAS INFECTION
  8. MEROPENEM. [Concomitant]
     Active Substance: MEROPENEM
     Indication: PSEUDOMONAS INFECTION
  9. CEFTRIAXONE. [Concomitant]
     Active Substance: CEFTRIAXONE
     Indication: EVIDENCE BASED TREATMENT
  10. MEROPENEM. [Concomitant]
     Active Substance: MEROPENEM
     Indication: DIABETIC FOOT INFECTION
     Dosage: 1 GRAM, TID
     Route: 042
  11. METRONIDAZOLE. [Concomitant]
     Active Substance: METRONIDAZOLE
     Indication: EVIDENCE BASED TREATMENT
  12. RAMIPRIL. [Suspect]
     Active Substance: RAMIPRIL
     Indication: PRODUCT USED FOR UNKNOWN INDICATION
     Dosage: UNK
     Route: 065
  13. ERTAPENEM. [Suspect]
     Active Substance: ERTAPENEM SODIUM
     Indication: STAPHYLOCOCCAL INFECTION
  14. FOSFOMYCIN [Suspect]
     Active Substance: FOSFOMYCIN
     Indication: DIABETIC FOOT INFECTION
     Dosage: 6 GRAM, TID
     Route: 042
  15. CEFTOLOZANE;TAZOBACTAM [Suspect]
     Active Substance: CEFTOLOZANE SULFATE\TAZOBACTAM SODIUM
     Indication: DIABETIC FOOT INFECTION
     Dosage: 1.5 GRAM, TID
     Route: 042
  16. GENTAMICIN. [Suspect]
     Active Substance: GENTAMICIN
     Indication: DIABETIC FOOT INFECTION
     Dosage: 160 MILLIGRAM, QD
     Route: 042
  17. GENTAMICIN. [Suspect]
     Active Substance: GENTAMICIN
     Indication: PSEUDOMONAS INFECTION
  18. FOSFOMYCIN [Suspect]
     Active Substance: FOSFOMYCIN
     Indication: PSEUDOMONAS INFECTION
  19. METRONIDAZOLE. [Concomitant]
     Active Substance: METRONIDAZOLE
     Indication: ANTIBIOTIC THERAPY
  20. CIPROFLOXACIN. [Suspect]
     Active Substance: CIPROFLOXACIN
     Indication: PSEUDOMONAS INFECTION
  21. ERTAPENEM. [Suspect]
     Active Substance: ERTAPENEM SODIUM
     Indication: DIABETIC FOOT
     Dosage: 1 GRAM, QD
     Route: 042
  22. ERTAPENEM. [Suspect]
     Active Substance: ERTAPENEM SODIUM
     Indication: BETA HAEMOLYTIC STREPTOCOCCAL INFECTION
  23. METRONIDAZOLE. [Concomitant]
     Active Substance: METRONIDAZOLE
     Indication: DIABETIC FOOT INFECTION
     Dosage: 500 MILLIGRAM, BID
     Route: 048
  24. CIPROFLOXACIN. [Suspect]
     Active Substance: CIPROFLOXACIN
     Indication: STAPHYLOCOCCAL INFECTION
  25. ONDANSETRON [Concomitant]
     Active Substance: ONDANSETRON
     Indication: NAUSEA
     Dosage: UNK
     Route: 042
  26. CEFAZOLIN [Concomitant]
     Active Substance: CEFAZOLIN
     Indication: ANTIBIOTIC PROPHYLAXIS
     Dosage: 2000 MILLIGRAM, TID
     Route: 065
  27. CIPROFLOXACIN. [Suspect]
     Active Substance: CIPROFLOXACIN
     Indication: BETA HAEMOLYTIC STREPTOCOCCAL INFECTION
  28. CEFTRIAXONE. [Concomitant]
     Active Substance: CEFTRIAXONE
     Indication: DIABETIC FOOT INFECTION
     Dosage: 2 GRAM, QD
     Route: 042
  29. CEFTRIAXONE. [Concomitant]
     Active Substance: CEFTRIAXONE
     Indication: ANTIBIOTIC THERAPY

REACTIONS (3)
  - Hypokalaemia [Recovered/Resolved]
  - Drug ineffective [Unknown]
  - Acute kidney injury [Recovered/Resolved]
